FAERS Safety Report 17133132 (Version 1)
Quarter: 2019Q4

REPORT INFORMATION
  Report Type: Spontaneous
  Country: NL (occurrence: NL)
  Receive Date: 20191210
  Receipt Date: 20191210
  Transmission Date: 20200122
  Serious: Yes (Life-Threatening, Hospitalization)
  Sender: FDA-Public Use
  Company Number: NL-TEVA-2019-NL-1148091

PATIENT
  Age: 67 Year
  Sex: Male
  Weight: 73 kg

DRUGS (12)
  1. MULTIVITAMINE 50+ HUISMERK TABLET [Concomitant]
     Dosage: 1 DOSAGE FORMS DAILY; 1 X SELF-CARE PER DAY
     Route: 048
  2. METHOTREXAAT PCH TABLET  2,5MG [Concomitant]
     Dosage: 15 MG; 1 X PER WEEK 6 ON SATURDAY
     Route: 048
  3. CANNABIDIOL DRUPPELS, 50 MG/ML (MILLIGRAM PER MILLILITER) [Interacting]
     Active Substance: CANNABIDIOL
     Indication: RHEUMATIC DISORDER
     Dosage: 1 DF; DROPS; UNKNOWN
     Dates: start: 20191017, end: 20191025
  4. TRAJENTA TABLET 5MG [Concomitant]
     Dosage: 5 MILLIGRAM DAILY; 1 X PER DAY 1 ITEM, STOP DATE: T.N.O. STOPPED
     Route: 048
  5. GLIBENCLAMIDE [Suspect]
     Active Substance: GLYBURIDE
     Indication: TYPE 2 DIABETES MELLITUS
     Dosage: 45 MILLIGRAM DAILY; 3 X 5 MG PER DAY
     Dates: start: 2015, end: 20191025
  6. ALENDRONINEZUUR TABLET 70MG [Concomitant]
     Dosage: 1 X PER WEEK 1 PIECE OF ALENDRONIC ACID ON MONDAY - INSTEAD OF. ALENCALCI D3 70MG / 500MG / 800IE (1
     Route: 048
  7. FOLIUMZUUR TABLET 5MG [Concomitant]
     Active Substance: FOLIC ACID
     Dosage: 10 MG 1 X PER WEEK 2 SUNDAYS
     Route: 048
  8. PREDNISOLON TABLET  5MG [Concomitant]
     Active Substance: PREDNISOLONE
     Dosage: 5 MILLIGRAM DAILY; 1 X PER DAY 1 PIECE
     Route: 048
  9. GLIBENCLAMIDE TABLET 5MG [Concomitant]
     Dosage: 45 MILLIGRAM DAILY; 3X 1 PIECE PER DAY, STOP DATE: T.N.O. STOPPED
     Route: 048
  10. CALCI CHEW D3 KAUWTABLET  500MG/800IE [Concomitant]
     Active Substance: CALCIUM CARBONATE\CHOLECALCIFEROL
     Dosage: 500MG / 800IE; 6 X PER WEEK 1 ITEM
     Route: 048
  11. OMEPRAZOL SANDOZ CAPSULE MSR 40MG [Concomitant]
     Dosage: 40 MILLIGRAM DAILY; 1 X PER DAY 1 PIECE OF STRENGTH NOT CERTAIN
     Route: 048
  12. METFORMIN [Concomitant]
     Active Substance: METFORMIN HYDROCHLORIDE
     Dosage: 850 MG 3 X 1 PIECE PER DAY, STOP DATE: T.N.O. STOPPED
     Route: 048

REACTIONS (3)
  - Drug interaction [Recovered/Resolved]
  - Hypoglycaemia [Recovered/Resolved]
  - Depressed level of consciousness [Recovered/Resolved]

NARRATIVE: CASE EVENT DATE: 20191018
